FAERS Safety Report 24039966 (Version 1)
Quarter: 2024Q3

REPORT INFORMATION
  Report Type: Spontaneous
  Country: US (occurrence: US)
  Receive Date: 20240702
  Receipt Date: 20240702
  Transmission Date: 20241016
  Serious: Yes (Death, Hospitalization, Other)
  Sender: PROCTER AND GAMBLE
  Company Number: US-PROCTER+GAMBLE-PH24005153

PATIENT
  Age: 27 Year
  Sex: Female

DRUGS (3)
  1. DIPHENHYDRAMINE HYDROCHLORIDE [Suspect]
     Active Substance: DIPHENHYDRAMINE HYDROCHLORIDE
     Dosage: MULTIPLE EMPTY PILL BOTTLES
     Route: 048
  2. CARVEDILOL [Suspect]
     Active Substance: CARVEDILOL
     Dosage: MULTIPLE EMPTY PILL BOTTLES
     Route: 048
  3. AMLODIPINE [Suspect]
     Active Substance: AMLODIPINE BESYLATE
     Dosage: MULTIPLE EMPTY PILL BOTTLES
     Route: 048

REACTIONS (13)
  - Completed suicide [Fatal]
  - Hypoxia [Fatal]
  - Toxicity to various agents [Fatal]
  - Overdose [Fatal]
  - Labelled drug-drug interaction issue [Fatal]
  - Bradycardia [Fatal]
  - Hypotension [Fatal]
  - Loss of consciousness [Fatal]
  - Oxygen saturation decreased [Fatal]
  - Aspiration [Fatal]
  - Lethargy [Fatal]
  - White blood cell count increased [Fatal]
  - Lung infiltration [Fatal]
